FAERS Safety Report 7416371-8 (Version None)
Quarter: 2011Q2

REPORT INFORMATION
  Report Type: 
  Country: None (occurrence: None)
  Receive Date: 20110414
  Receipt Date: 20110405
  Transmission Date: 20111010
  Serious: Yes (Hospitalization)
  Sender: FDA-Public Use
  Company Number: US-ASTRAZENECA-2011SE19243

PATIENT
  Age: 636 Month
  Sex: Female

DRUGS (10)
  1. PROPRANOLOL [Concomitant]
  2. PROGESTERONE [Concomitant]
  3. VISTARIL [Concomitant]
  4. SEROQUEL XR [Suspect]
     Indication: MENTAL DISORDER
     Route: 048
  5. HYDROXYZINE [Concomitant]
  6. TEMAZEPAM [Concomitant]
  7. ULTRAM [Concomitant]
  8. EFFEXOR XR [Concomitant]
  9. DIAZEPAM [Concomitant]
  10. ESTRADIAL [Concomitant]

REACTIONS (4)
  - DYSSTASIA [None]
  - DIABETES MELLITUS [None]
  - FALL [None]
  - KIDNEY INFECTION [None]
